FAERS Safety Report 8702705 (Version 3)
Quarter: 2012Q4

REPORT INFORMATION
  Report Type: 
  Country: US (occurrence: US)
  Receive Date: 20120803
  Receipt Date: 20121127
  Transmission Date: 20130627
  Serious: Yes (Death)
  Sender: FDA-Public Use
  Company Number: US-CELGENEUS-163-21880-12073266

PATIENT
  Age: 49 Year
  Sex: Female

DRUGS (21)
  1. REVLIMID [Suspect]
     Indication: NODULAR LYMPHOMA
     Dosage: 25 Milligram
     Route: 048
     Dates: start: 201203
  2. REVLIMID [Suspect]
     Indication: LYMPHOMA
  3. ACYCLOVIR [Concomitant]
     Indication: DRUG USE FOR UNKNOWN INDICATION
     Dosage: 400 Milligram
     Route: 048
     Dates: start: 20120619
  4. AMBIEN [Concomitant]
     Indication: INSOMNIA
     Dosage: 10 Milligram
     Route: 048
     Dates: start: 20120227
  5. ATIVAN [Concomitant]
     Indication: NAUSEA
     Dosage: 1 Milligram
     Route: 048
     Dates: start: 20111222
  6. ATIVAN [Concomitant]
     Indication: VOMITING
  7. BACLOFEN [Concomitant]
     Indication: DRUG USE FOR UNKNOWN INDICATION
     Dosage: 30 Milligram
     Route: 048
     Dates: start: 20120601
  8. COLACE [Concomitant]
     Indication: CONSTIPATION
     Dosage: 200 Milligram
     Route: 048
     Dates: start: 20120601
  9. DILAUDID [Concomitant]
     Indication: PAIN
     Dosage: 4 Milligram
     Route: 048
     Dates: start: 20120619
  10. EMLA [Concomitant]
     Indication: THERAPEUTIC PROCEDURE
     Dosage: 1 app
     Route: 061
     Dates: start: 20120619
  11. GABAPENTIN [Concomitant]
     Indication: DRUG USE FOR UNKNOWN INDICATION
     Dosage: 1800 Milligram
     Route: 048
     Dates: start: 20120601
  12. GRANISETRON [Concomitant]
     Indication: NAUSEA
     Dosage: 2 Milligram
     Route: 048
     Dates: start: 20111223
  13. GRANISETRON [Concomitant]
     Indication: VOMITING
  14. MEPRON [Concomitant]
     Indication: DRUG USE FOR UNKNOWN INDICATION
     Dosage: 750mg/5ml
     Route: 048
     Dates: start: 20120529
  15. MIRALAX [Concomitant]
     Indication: DRUG USE FOR UNKNOWN INDICATION
     Dosage: 17 Gram
     Route: 048
     Dates: start: 20120525
  16. MS CONTIN [Concomitant]
     Indication: DRUG USE FOR UNKNOWN INDICATION
     Dosage: 15 Milligram
     Route: 048
     Dates: start: 20120525
  17. MS CONTIN [Concomitant]
     Dosage: 30 Milligram
     Route: 048
     Dates: start: 20120525
  18. MSIR [Concomitant]
     Indication: BREAKTHROUGH PAIN
     Dosage: 15 Milligram
     Route: 048
     Dates: start: 20120531
  19. OMEPRAZOLE [Concomitant]
     Indication: DRUG USE FOR UNKNOWN INDICATION
     Dosage: 40 Milligram
     Route: 048
     Dates: start: 20120620
  20. SUCRALFATE [Concomitant]
     Indication: DRUG USE FOR UNKNOWN INDICATION
     Route: 048
     Dates: start: 20101213
  21. VENTOLIN [Concomitant]
     Indication: SHORTNESS OF BREATH
     Route: 055
     Dates: start: 20110825

REACTIONS (3)
  - Non-Hodgkin^s lymphoma [Fatal]
  - Hepatic failure [Fatal]
  - Respiratory failure [Fatal]
